FAERS Safety Report 8759298 (Version 2)
Quarter: 2013Q1

REPORT INFORMATION
  Report Type: Spontaneous
  Country: US (occurrence: US)
  Receive Date: 20120829
  Receipt Date: 20130107
  Transmission Date: 20140127
  Serious: Yes (Hospitalization)
  Sender: FDA-Public Use
  Company Number: US-B.I. PHARMACEUTICALS,INC./RIDGEFIELD-2012-BP-20325BP

PATIENT
  Age: 74 None
  Sex: Male
  Weight: 90.72 kg

DRUGS (13)
  1. PRADAXA [Suspect]
     Indication: ANTICOAGULANT THERAPY
     Dosage: 300 MG
     Dates: start: 201106
  2. ASPIRIN [Concomitant]
  3. MAGNESIUM OXIDE [Concomitant]
     Dosage: 400 MG
  4. TOPROL XL [Concomitant]
     Dosage: 100 MG
  5. BENICAR [Concomitant]
     Dosage: 10 MG
  6. LOVAZA [Concomitant]
  7. ACIPHEX [Concomitant]
     Dosage: 20 MG
  8. LANTUS [Concomitant]
     Dosage: 60 U
  9. GLIPIZIDE [Concomitant]
     Dosage: 10 MG
  10. NEURONTIN [Concomitant]
     Dosage: 300 MG
  11. TRAMADOL [Concomitant]
     Dosage: 150 MG
  12. PREDNISONE [Concomitant]
     Dosage: 9 MG
  13. OTC SUPPLEMENTS [Concomitant]

REACTIONS (3)
  - Gastrointestinal haemorrhage [Unknown]
  - Haematochezia [Unknown]
  - Haemorrhage [Unknown]
